FAERS Safety Report 14070955 (Version 1)
Quarter: 2017Q4

REPORT INFORMATION
  Report Type: Spontaneous
  Country: US (occurrence: US)
  Receive Date: 20171011
  Receipt Date: 20171011
  Transmission Date: 20180321
  Serious: No
  Sender: FDA-Public Use
  Company Number: US-APOTEX-2017AP012079

PATIENT

DRUGS (1)
  1. MIRTAZAPINE. [Suspect]
     Active Substance: MIRTAZAPINE
     Indication: IMPAIRED GASTRIC EMPTYING
     Dosage: 15 MG, Q.H.S.
     Route: 048

REACTIONS (2)
  - Thinking abnormal [Unknown]
  - Disorientation [Unknown]
